FAERS Safety Report 15777301 (Version 1)
Quarter: 2018Q4

REPORT INFORMATION
  Report Type: Spontaneous
  Country: JP (occurrence: JP)
  Receive Date: 20181231
  Receipt Date: 20181231
  Transmission Date: 20190205
  Serious: Yes (Life-Threatening, Hospitalization)
  Sender: FDA-Public Use
  Company Number: JP-CMP PHARMA-2018CMP00045

PATIENT
  Age: 13 Year
  Sex: Female

DRUGS (3)
  1. ISONIAZID. [Suspect]
     Active Substance: ISONIAZID
     Indication: LATENT TUBERCULOSIS
     Dosage: 200 MG, 1X/DAY
     Route: 065
  2. ISONIAZID. [Suspect]
     Active Substance: ISONIAZID
     Dosage: 6400 MG, 112 MG/KG
  3. PYRIDOXAL PHOSPHATE HYDRATE [Concomitant]
     Indication: LATENT TUBERCULOSIS
     Dosage: 20 MG, 1X/DAY
     Route: 065

REACTIONS (5)
  - Suicide attempt [Recovered/Resolved]
  - Rhabdomyolysis [Recovered/Resolved]
  - Intentional overdose [Recovered/Resolved]
  - Toxicity to various agents [Recovered/Resolved]
  - Status epilepticus [Recovered/Resolved]
